FAERS Safety Report 5490073-X (Version None)
Quarter: 2007Q4

REPORT INFORMATION
  Report Type: 
  Country: None (occurrence: None)
  Receive Date: 20071018
  Receipt Date: 20071016
  Transmission Date: 20080405
  Serious: Yes (Hospitalization)
  Sender: FDA-Public Use
  Company Number: TR-ROXANE LABORATORIES, INC-2007-BP-22774RO

PATIENT
  Age: 54 Year
  Sex: Female

DRUGS (9)
  1. LITHIUM CARBONATE [Suspect]
     Indication: MANIA
  2. LITHIUM CARBONATE [Suspect]
  3. LITHIUM CARBONATE [Suspect]
  4. RISPERIDONE [Suspect]
     Indication: MANIA
  5. RISPERIDONE [Suspect]
  6. BIPERIDENE [Suspect]
     Indication: MANIA
  7. BIPERIDENE [Suspect]
  8. BROMOCRIPTINE MESYLATE [Concomitant]
     Indication: NEUROLEPTIC MALIGNANT SYNDROME
  9. BROMOCRIPTINE MESYLATE [Concomitant]

REACTIONS (13)
  - ANTIPSYCHOTIC DRUG LEVEL BELOW THERAPEUTIC [None]
  - BLOOD CREATINE PHOSPHOKINASE INCREASED [None]
  - COGWHEEL RIGIDITY [None]
  - DEEP VEIN THROMBOSIS [None]
  - DISORIENTATION [None]
  - EXTRAPYRAMIDAL DISORDER [None]
  - HYPERNATRAEMIA [None]
  - MYOGLOBINAEMIA [None]
  - NEUROLEPTIC MALIGNANT SYNDROME [None]
  - PNEUMONIA [None]
  - PYREXIA [None]
  - SOMNOLENCE [None]
  - URINARY INCONTINENCE [None]
